FAERS Safety Report 8060256-3 (Version None)
Quarter: 2012Q1

REPORT INFORMATION
  Report Type: 
  Country: None (occurrence: None)
  Receive Date: 20120120
  Receipt Date: 20120111
  Transmission Date: 20120608
  Serious: Yes (Death, Hospitalization)
  Sender: FDA-Public Use
  Company Number: US-ACTELION-A-NJ2011-57317

PATIENT

DRUGS (2)
  1. TRACLEER [Suspect]
     Indication: PULMONARY ARTERIAL HYPERTENSION
     Dosage: UNK
     Route: 048
     Dates: start: 20090319
  2. OXYGEN [Concomitant]

REACTIONS (6)
  - LOWER LIMB FRACTURE [None]
  - NERVE INJURY [None]
  - DEATH [None]
  - VIRAL INFECTION [None]
  - INTESTINAL HAEMORRHAGE [None]
  - PNEUMONIA [None]
